FAERS Safety Report 8001950-X (Version None)
Quarter: 2011Q4

REPORT INFORMATION
  Report Type: 
  Country: None (occurrence: None)
  Receive Date: 20111219
  Receipt Date: 20111209
  Transmission Date: 20120403
  Serious: Yes (Hospitalization)
  Sender: FDA-Public Use
  Company Number: AUR-APL-2011-06012

PATIENT
  Age: 89 Year
  Sex: Female

DRUGS (2)
  1. FLUOXETINE HYDROCHLORIDE [Suspect]
     Indication: PRODUCT USED FOR UNKNOWN INDICATION
     Dosage: (20 MG, 1 D),ORAL
     Route: 048
  2. CLARITHROMYCIN [Suspect]
     Indication: RESPIRATORY TRACT INFECTION
     Dosage: ORAL
     Route: 048

REACTIONS (8)
  - URINARY TRACT INFECTION [None]
  - SEROTONIN SYNDROME [None]
  - ATRIAL FIBRILLATION [None]
  - NO THERAPEUTIC RESPONSE [None]
  - DISEASE RECURRENCE [None]
  - TOXICITY TO VARIOUS AGENTS [None]
  - INHIBITORY DRUG INTERACTION [None]
  - RESPIRATORY TRACT INFECTION [None]
